FAERS Safety Report 16754751 (Version 2)
Quarter: 2020Q3

REPORT INFORMATION
  Report Type: Spontaneous
  Country: US (occurrence: US)
  Receive Date: 20190829
  Receipt Date: 20200803
  Transmission Date: 20201102
  Serious: No
  Sender: FDA-Public Use
  Company Number: US-PFIZER INC-2019367620

PATIENT
  Sex: Female

DRUGS (2)
  1. LYRICA [Suspect]
     Active Substance: PREGABALIN
     Dosage: 150 MG, UNK
  2. LYRICA [Suspect]
     Active Substance: PREGABALIN
     Dosage: 600 MG, UNK (300 MG TABLETS TAKING 2 OF THEM UP TO 600 MG)

REACTIONS (3)
  - Urticaria [Unknown]
  - Rash [Unknown]
  - Insomnia [Unknown]
